FAERS Safety Report 7329005-8 (Version None)
Quarter: 2011Q1

REPORT INFORMATION
  Report Type: 
  Country: None (occurrence: None)
  Receive Date: 20110303
  Receipt Date: 20110218
  Transmission Date: 20110831
  Serious: Yes (Hospitalization)
  Sender: FDA-Public Use
  Company Number: PHHY2011JP13876

PATIENT
  Age: 61 Year
  Sex: Female

DRUGS (2)
  1. WARFARIN [Suspect]
     Indication: ATRIAL FIBRILLATION
     Dosage: 1.5 MG, UNK
  2. INSULIN [Suspect]
     Route: 058

REACTIONS (4)
  - SHOCK HAEMORRHAGIC [None]
  - SUBCUTANEOUS HAEMATOMA [None]
  - INJECTION SITE HAEMATOMA [None]
  - RENAL IMPAIRMENT [None]
